FAERS Safety Report 9261552 (Version 2)
Quarter: 2013Q2

REPORT INFORMATION
  Report Type: Spontaneous
  Country: GB (occurrence: GB)
  Receive Date: 20130429
  Receipt Date: 20130503
  Transmission Date: 20140414
  Serious: Yes (Death, Other)
  Sender: FDA-Public Use
  Company Number: GB-PFIZER INC-2013129424

PATIENT
  Age: 77 Year
  Sex: Female

DRUGS (5)
  1. PREGABALIN [Suspect]
     Indication: POST HERPETIC NEURALGIA
     Dosage: 200 MG, 2X/DAY
     Route: 048
     Dates: start: 20130219, end: 20130223
  2. PERINDOPRIL [Concomitant]
  3. IRBESARTAN [Concomitant]
  4. ATORVASTATIN [Concomitant]
  5. SPIRONOLACTONE [Concomitant]

REACTIONS (10)
  - Renal failure acute [Fatal]
  - Sepsis [Not Recovered/Not Resolved]
  - Hepatic neoplasm [Not Recovered/Not Resolved]
  - Toxicity to various agents [Not Recovered/Not Resolved]
  - Myoclonus [Not Recovered/Not Resolved]
  - Incorrect dose administered [Unknown]
  - Alcohol interaction [Unknown]
  - Tremor [Not Recovered/Not Resolved]
  - Confusional state [Not Recovered/Not Resolved]
  - Blood creatinine increased [Not Recovered/Not Resolved]
